FAERS Safety Report 4806655-1 (Version None)
Quarter: 2005Q4

REPORT INFORMATION
  Report Type: 
  Country: None (occurrence: None)
  Receive Date: 20051019
  Receipt Date: 20051003
  Transmission Date: 20060501
  Serious: Yes (Life-Threatening, Hospitalization, Other)
  Sender: FDA-Public Use
  Company Number: USA0509108615

PATIENT
  Age: 90 Year
  Sex: Male

DRUGS (9)
  1. CYMBALTA [Suspect]
     Dosage: 30 MG
  2. DETROL [Concomitant]
  3. DIGOXIN [Concomitant]
  4. GABAPENTIN [Concomitant]
  5. DARVOCET [Concomitant]
  6. FLOVENT [Concomitant]
  7. SEREVENT [Concomitant]
  8. XALANTAN (LATNOPROST) [Concomitant]
  9. WARFARIN [Concomitant]

REACTIONS (13)
  - ACUTE PRERENAL FAILURE [None]
  - ANOREXIA [None]
  - ASTHENIA [None]
  - ATRIAL FLUTTER [None]
  - BLOOD GLUCOSE INCREASED [None]
  - CONFUSIONAL STATE [None]
  - DISORIENTATION [None]
  - ELECTROCARDIOGRAM ST-T CHANGE [None]
  - FAILURE TO THRIVE [None]
  - HEART RATE IRREGULAR [None]
  - INFECTION [None]
  - LEUKOCYTOSIS [None]
  - WHITE BLOOD CELL COUNT INCREASED [None]
